FAERS Safety Report 7298609-3 (Version None)
Quarter: 2011Q1

REPORT INFORMATION
  Report Type: 
  Country: None (occurrence: None)
  Receive Date: 20110217
  Receipt Date: 20110214
  Transmission Date: 20110831
  Serious: Yes (Death, Other)
  Sender: FDA-Public Use
  Company Number: PHHY2011US07601

PATIENT
  Sex: Male
  Weight: 86.168 kg

DRUGS (1)
  1. EXJADE [Suspect]
     Indication: MYELODYSPLASTIC SYNDROME
     Dosage: 2500 MG, QD
     Route: 048
     Dates: start: 20100101, end: 20110101

REACTIONS (3)
  - ACUTE LEUKAEMIA [None]
  - OESOPHAGEAL PAIN [None]
  - NEOPLASM MALIGNANT [None]
